FAERS Safety Report 7689790-2 (Version None)
Quarter: 2011Q3

REPORT INFORMATION
  Report Type: 
  Country: None (occurrence: None)
  Receive Date: 20110818
  Receipt Date: 20110815
  Transmission Date: 20111222
  Serious: Yes (Other)
  Sender: FDA-Public Use
  Company Number: US-BRISTOL-MYERS SQUIBB COMPANY-15853963

PATIENT
  Age: 40 Year
  Sex: Male
  Weight: 97 kg

DRUGS (2)
  1. LISINOPRIL [Concomitant]
  2. ABILIFY [Suspect]
     Indication: BIPOLAR DISORDER
     Dosage: 2 1/2 TO 3YRS AGO TRETMENT IS STARTED
     Dates: start: 20090101, end: 20110201

REACTIONS (3)
  - OBSESSIVE-COMPULSIVE DISORDER [None]
  - MENTAL IMPAIRMENT [None]
  - MANIA [None]
